FAERS Safety Report 21927046 (Version 1)
Quarter: 2023Q1

REPORT INFORMATION
  Report Type: Spontaneous
  Country: US (occurrence: US)
  Receive Date: 20230130
  Receipt Date: 20230130
  Transmission Date: 20230418
  Serious: No
  Sender: FDA-Public Use
  Company Number: US-SAREPTA THERAPEUTICS INC.-SRP2022-002700

PATIENT
  Age: 13 Year
  Sex: Male
  Weight: 68.4 kg

DRUGS (2)
  1. AMONDYS 45 [Suspect]
     Active Substance: CASIMERSEN
     Indication: Duchenne muscular dystrophy
     Dosage: 2050 MILLIGRAM, WEEKLY
     Route: 042
     Dates: start: 20220717, end: 20221008
  2. AMONDYS 45 [Suspect]
     Active Substance: CASIMERSEN
     Dosage: 2050 MILLIGRAM, WEEKLY
     Route: 042
     Dates: start: 20221018

REACTIONS (4)
  - Pain in extremity [Not Recovered/Not Resolved]
  - Sinus congestion [Not Recovered/Not Resolved]
  - Road traffic accident [Unknown]
  - Product dose omission issue [Unknown]

NARRATIVE: CASE EVENT DATE: 20221001
